FAERS Safety Report 16610206 (Version 1)
Quarter: 2019Q3

REPORT INFORMATION
  Report Type: Spontaneous
  Country: US (occurrence: US)
  Receive Date: 20190722
  Receipt Date: 20190722
  Transmission Date: 20191004
  Serious: No
  Sender: FDA-Public Use
  Company Number: US-009507513-1907USA004199

PATIENT
  Age: 68 Year
  Sex: Female

DRUGS (4)
  1. SYNTHROID [Concomitant]
     Active Substance: LEVOTHYROXINE SODIUM
  2. NASONEX [Suspect]
     Active Substance: MOMETASONE FUROATE
     Indication: RHINITIS ALLERGIC
     Dosage: 4 SPRAYS IN EACH NOSTRIL, QD
     Route: 045
  3. PREMARIN [Concomitant]
     Active Substance: ESTROGENS, CONJUGATED
  4. CELEBREX [Concomitant]
     Active Substance: CELECOXIB

REACTIONS (3)
  - Product quality issue [Not Recovered/Not Resolved]
  - Product dose omission [Unknown]
  - Nasal congestion [Not Recovered/Not Resolved]

NARRATIVE: CASE EVENT DATE: 20190705
